FAERS Safety Report 7307290-6 (Version None)
Quarter: 2011Q1

REPORT INFORMATION
  Report Type: 
  Country: None (occurrence: None)
  Receive Date: 20110223
  Receipt Date: 20110210
  Transmission Date: 20110831
  Serious: Yes (Hospitalization)
  Sender: FDA-Public Use
  Company Number: JP-JNJFOC-20110205316

PATIENT
  Age: 52 Year
  Sex: Male

DRUGS (4)
  1. CRAVIT [Suspect]
     Indication: NASOPHARYNGITIS
     Route: 048
  2. PL GRAN [Suspect]
     Indication: NASOPHARYNGITIS
     Route: 065
  3. KAKKONTOU [Suspect]
     Indication: PRODUCT USED FOR UNKNOWN INDICATION
     Route: 065
  4. ACETYLSALICYLIC ACID SRT [Suspect]
     Indication: PRODUCT USED FOR UNKNOWN INDICATION
     Route: 065

REACTIONS (4)
  - LIVER DISORDER [None]
  - MALAISE [None]
  - HAEMATURIA [None]
  - DRUG INEFFECTIVE [None]
